FAERS Safety Report 5702904-6 (Version None)
Quarter: 2008Q2

REPORT INFORMATION
  Report Type: 
  Country: None (occurrence: None)
  Receive Date: 20080408
  Receipt Date: 20080328
  Transmission Date: 20081010
  Serious: Yes (Other)
  Sender: FDA-Public Use
  Company Number: GXKR2007NL09442

PATIENT
  Age: 46 Year
  Sex: Female
  Weight: 77 kg

DRUGS (8)
  1. METOPROLOL SANDOZ (NGX)(METOPROLOL) UNKNOWN, 100MG [Suspect]
     Indication: MIGRAINE PROPHYLAXIS
     Dosage: 50 MG, QD, ORAL; 100 MG, QD, ORAL
     Route: 048
     Dates: start: 20070918, end: 20071003
  2. METOPROLOL SANDOZ (NGX)(METOPROLOL) UNKNOWN, 100MG [Suspect]
     Indication: MIGRAINE PROPHYLAXIS
     Dosage: 50 MG, QD, ORAL; 100 MG, QD, ORAL
     Route: 048
     Dates: start: 20071004, end: 20071021
  3. AASACOL (MESALAZINE) TABLET [Concomitant]
  4. CETIRIZINE (CETIRIZINE) TABLET [Concomitant]
  5. YASMIN (DROSPIRENONE, ETHINYLESTRADIOL) FILM-COATED TABLET [Concomitant]
  6. PARACETAMOL. + CODEINE (CODEINE, PARACETAMOL) TABLET, 500/10 MG [Concomitant]
  7. OXAZEPAM (OXAZEPAM) TABLET, 10 MG [Concomitant]
  8. SERETIDE DISKUS (FLUTICASONE PROPIONATE, SALMETEROL XINAFOATE) [Concomitant]

REACTIONS (9)
  - ANXIETY [None]
  - DEPERSONALISATION [None]
  - DEREALISATION [None]
  - DISTURBANCE IN ATTENTION [None]
  - EMOTIONAL DISORDER [None]
  - MIGRAINE [None]
  - NIGHTMARE [None]
  - PSYCHOTIC DISORDER [None]
  - TINNITUS [None]
